FAERS Safety Report 17414498 (Version 1)
Quarter: 2020Q1

REPORT INFORMATION
  Report Type: Spontaneous
  Country: US (occurrence: US)
  Receive Date: 20200213
  Receipt Date: 20200213
  Transmission Date: 20200409
  Serious: No
  Sender: FDA-Public Use
  Company Number: US-PFIZER INC-2020061993

PATIENT
  Age: 81 Year
  Sex: Female

DRUGS (2)
  1. HYDROCORTISONE. [Suspect]
     Active Substance: HYDROCORTISONE
  2. PROCARDIA [Suspect]
     Active Substance: NIFEDIPINE

REACTIONS (1)
  - Drug hypersensitivity [Unknown]
